FAERS Safety Report 16777078 (Version 1)
Quarter: 2019Q3

REPORT INFORMATION
  Report Type: Spontaneous
  Country: US (occurrence: US)
  Receive Date: 20190905
  Receipt Date: 20190905
  Transmission Date: 20191005
  Serious: Yes (Hospitalization)
  Sender: FDA-Public Use
  Company Number: None

PATIENT
  Sex: Male

DRUGS (4)
  1. ENOXAPARIN [Suspect]
     Active Substance: ENOXAPARIN
     Indication: HYPERCOAGULATION
     Route: 058
     Dates: start: 20150911
  2. PRANDIN [Concomitant]
     Active Substance: REPAGLINIDE
  3. BACLOFEN. [Concomitant]
     Active Substance: BACLOFEN
  4. RESTORIL [Concomitant]
     Active Substance: TEMAZEPAM

REACTIONS (2)
  - Urinary tract infection [None]
  - Myocardial infarction [None]
